FAERS Safety Report 12351585 (Version 9)
Quarter: 2016Q4

REPORT INFORMATION
  Report Type: Report from Study
  Country: GB (occurrence: GB)
  Receive Date: 20160510
  Receipt Date: 20161104
  Transmission Date: 20170207
  Serious: Yes (Hospitalization, Other)
  Sender: FDA-Public Use
  Company Number: GB-BRISTOL-MYERS SQUIBB COMPANY-BMS-2016-025234

PATIENT
  Age: 63 Year
  Sex: Female

DRUGS (2)
  1. IPILIMUMAB [Suspect]
     Active Substance: IPILIMUMAB
     Indication: MALIGNANT MELANOMA
     Dosage: UNK
     Route: 065
     Dates: start: 20151120
  2. ACITRETIN. [Suspect]
     Active Substance: ACITRETIN
     Indication: DERMATITIS
     Route: 065

REACTIONS (26)
  - Diarrhoea [Recovered/Resolved]
  - Mastectomy [Unknown]
  - Muscle flap operation [Unknown]
  - Decreased appetite [Recovering/Resolving]
  - Headache [Recovered/Resolved]
  - Breast pain [Recovered/Resolved]
  - Breast mass [Unknown]
  - Cataract [Unknown]
  - Pathological fracture [Unknown]
  - Toothache [Recovered/Resolved]
  - Neck pain [Recovered/Resolved]
  - Malignant neoplasm progression [Unknown]
  - Bone operation [Unknown]
  - Nausea [Unknown]
  - Asthenia [Unknown]
  - Weight decreased [Unknown]
  - Condition aggravated [Unknown]
  - Insomnia [Unknown]
  - Dermatitis [Unknown]
  - Periarthritis [Unknown]
  - Visual acuity reduced [Unknown]
  - Breast pain [Unknown]
  - Musculoskeletal pain [Unknown]
  - Cataract operation [Unknown]
  - Vomiting [Recovered/Resolved]
  - Fatigue [Recovering/Resolving]

NARRATIVE: CASE EVENT DATE: 20160705
